FAERS Safety Report 22650352 (Version 1)
Quarter: 2023Q2

REPORT INFORMATION
  Report Type: Spontaneous
  Country: US (occurrence: US)
  Receive Date: 20230628
  Receipt Date: 20230628
  Transmission Date: 20230721
  Serious: No
  Sender: FDA-Public Use
  Company Number: US-MAYNE PHARMA-2022TMD00841

PATIENT
  Age: 64 Year
  Sex: Female
  Weight: 60.317 kg

DRUGS (8)
  1. IMVEXXY [Suspect]
     Active Substance: ESTRADIOL
     Indication: Blood oestrogen decreased
     Dosage: 4 ?G, 1X/DAY
     Route: 067
     Dates: start: 20220815, end: 20220820
  2. IMVEXXY [Suspect]
     Active Substance: ESTRADIOL
     Indication: Ill-defined disorder
  3. LOVASTATIN [Concomitant]
     Active Substance: LOVASTATIN
  4. ZYRTEC [Concomitant]
     Active Substance: CETIRIZINE HYDROCHLORIDE
  5. VITAMIN D [Concomitant]
     Active Substance: VITAMIN D NOS
  6. COENZYME Q10 [Concomitant]
     Active Substance: DIETARY SUPPLEMENT\UBIDECARENONE
  7. VITAMIN C [Concomitant]
     Active Substance: ASCORBIC ACID
  8. MIRALAX [Concomitant]
     Active Substance: POLYETHYLENE GLYCOL 3350

REACTIONS (1)
  - Rash pruritic [Recovering/Resolving]

NARRATIVE: CASE EVENT DATE: 20220821
